FAERS Safety Report 18834887 (Version 1)
Quarter: 2021Q1

REPORT INFORMATION
  Report Type: Spontaneous
  Country: US (occurrence: US)
  Receive Date: 20210203
  Receipt Date: 20210203
  Transmission Date: 20210419
  Serious: Yes (Other)
  Sender: FDA-Public Use
  Company Number: US-LUPIN PHARMACEUTICALS INC.-2021-01045

PATIENT
  Age: 13 Year
  Sex: Male

DRUGS (11)
  1. ALBUTEROL [SALBUTAMOL SULFATE] [Concomitant]
     Active Substance: ALBUTEROL SULFATE
     Indication: CHRONIC RHINOSINUSITIS WITH NASAL POLYPS
     Dosage: UNK (AS REQUIRED
     Route: 065
  2. DUPILUMAB [Concomitant]
     Active Substance: DUPILUMAB
     Indication: GRANULOMATOSIS WITH POLYANGIITIS
     Dosage: 600 MILLIGRAM (LOADING DOSE)
     Route: 065
  3. DUPILUMAB [Concomitant]
     Active Substance: DUPILUMAB
     Dosage: 300 MILLIGRAM (EVERY 14 DAYS)
     Route: 065
  4. BUDESONIDE;FORMOTEROL FUMARATE DIHYDRATE [Suspect]
     Active Substance: BUDESONIDE\FORMOTEROL FUMARATE DIHYDRATE
     Indication: CHRONIC RHINOSINUSITIS WITHOUT NASAL POLYPS
     Dosage: 2 DOSAGE FORM, QD (160MCG/4.5MCG; 2 PUFFS EVERYDAY)
     Route: 065
  5. MEPOLIZUMAB [Suspect]
     Active Substance: MEPOLIZUMAB
     Indication: GRANULOMATOSIS WITH POLYANGIITIS
     Dosage: 100 MILLIGRAM (PRIOR TO THE DIAGNOSIS OF ANCA?NEGATIVE EGAP)
     Route: 065
  6. BUDESONIDE. [Suspect]
     Active Substance: BUDESONIDE
     Indication: PERIORBITAL CELLULITIS
  7. PREDNISONE. [Suspect]
     Active Substance: PREDNISONE
     Indication: CHRONIC RHINOSINUSITIS WITH NASAL POLYPS
     Dosage: 2 MILLIGRAM/KILOGRAM, QD
     Route: 065
  8. FORMOTEROL FUMARATE;MOMETASONE FUROATE [Suspect]
     Active Substance: FORMOTEROL FUMARATE\MOMETASONE FUROATE
     Indication: CHRONIC RHINOSINUSITIS WITH NASAL POLYPS
     Dosage: 2 DOSAGE FORM, QD (200MCG/5MCG; 2 PUFFS TWICE DAILY)
     Route: 065
  9. MONTELUKAST [Concomitant]
     Active Substance: MONTELUKAST SODIUM
     Indication: CHRONIC RHINOSINUSITIS WITH NASAL POLYPS
     Dosage: UNK
     Route: 065
  10. MEPOLIZUMAB [Suspect]
     Active Substance: MEPOLIZUMAB
     Dosage: 300 MILLIGRAM (AFTER THE DIAGNOSIS OF ANCA?NEGATIVE EGAP)
     Route: 065
  11. BUDESONIDE. [Suspect]
     Active Substance: BUDESONIDE
     Indication: SINUSITIS
     Dosage: UNK (RINSES) TWICW DAILY
     Route: 065

REACTIONS (4)
  - Drug ineffective [Unknown]
  - Rebound effect [Unknown]
  - Adrenal insufficiency [Unknown]
  - Bone density decreased [Unknown]
